FAERS Safety Report 24434895 (Version 4)
Quarter: 2025Q3

REPORT INFORMATION
  Report Type: Report from Study
  Country: US (occurrence: US)
  Receive Date: 20241014
  Receipt Date: 20250922
  Transmission Date: 20251021
  Serious: Yes (Other)
  Sender: SUNOVION
  Company Number: US-SUMITOMO PHARMA SWITZERLAND GMBH-2024SPA003341

PATIENT
  Age: 63 Year
  Sex: Male

DRUGS (2)
  1. ORGOVYX [Suspect]
     Active Substance: RELUGOLIX
     Indication: Prostate cancer
     Route: 048
  2. ORGOVYX [Suspect]
     Active Substance: RELUGOLIX
     Dosage: 120 MG, QD
     Route: 048
     Dates: start: 20240927

REACTIONS (15)
  - Multiple sclerosis [Unknown]
  - Brain fog [Unknown]
  - Balance disorder [Unknown]
  - Fall [Unknown]
  - Pain [Unknown]
  - Akathisia [Unknown]
  - Migraine [Unknown]
  - Malaise [Unknown]
  - Liver function test increased [Unknown]
  - Renal function test abnormal [Unknown]
  - Cognitive disorder [Unknown]
  - Fatigue [Unknown]
  - Asthenia [Unknown]
  - Diarrhoea [Unknown]
  - Depression [Unknown]
